FAERS Safety Report 6386937-5 (Version None)
Quarter: 2009Q4

REPORT INFORMATION
  Report Type: 
  Country: None (occurrence: None)
  Receive Date: 20091002
  Receipt Date: 20090923
  Transmission Date: 20100525
  Serious: Yes (Hospitalization)
  Sender: FDA-Public Use
  Company Number: US-ASTRAZENECA-2009SE14877

PATIENT
  Age: 50 Year
  Sex: Female
  Weight: 59 kg

DRUGS (4)
  1. SEROQUEL [Suspect]
     Indication: SCHIZOAFFECTIVE DISORDER
     Route: 048
     Dates: start: 20090401
  2. ATIVAN [Concomitant]
  3. LITHIUM [Concomitant]
  4. PAXIL [Concomitant]

REACTIONS (4)
  - APATHY [None]
  - DEPRESSION [None]
  - HYPERSOMNIA [None]
  - SOMNOLENCE [None]
